FAERS Safety Report 8349891-2 (Version None)
Quarter: 2012Q2

REPORT INFORMATION
  Report Type: 
  Country: None (occurrence: None)
  Receive Date: 20120510
  Receipt Date: 20120507
  Transmission Date: 20120825
  Serious: Yes (Hospitalization)
  Sender: FDA-Public Use
  Company Number: IT-SANOFI-AVENTIS-2012SA028473

PATIENT
  Age: 89 Year
  Sex: Male

DRUGS (3)
  1. LEVOFLOXACIN [Suspect]
     Route: 042
     Dates: start: 20120327, end: 20120405
  2. PIPERACILLIN AND TAZOBACTAM [Suspect]
     Route: 042
     Dates: start: 20120327, end: 20120405
  3. ENOXAPARIN SODIUM [Suspect]
     Route: 058
     Dates: start: 20120313, end: 20120405

REACTIONS (1)
  - DERMATITIS EXFOLIATIVE [None]
